FAERS Safety Report 7089937-5 (Version None)
Quarter: 2010Q4

REPORT INFORMATION
  Report Type: 
  Country: None (occurrence: None)
  Receive Date: 20101108
  Receipt Date: 20101026
  Transmission Date: 20110411
  Serious: Yes (Hospitalization)
  Sender: FDA-Public Use
  Company Number: DE-MYLANLABS-2010S1019572

PATIENT
  Age: 68 Year
  Sex: Female
  Weight: 110 kg

DRUGS (4)
  1. DICLOFENAC SODIUM [Suspect]
     Indication: OSTEOARTHRITIS
     Route: 048
     Dates: end: 20101009
  2. FALITHROM [Interacting]
     Indication: ATRIAL FIBRILLATION
     Route: 048
     Dates: end: 20101009
  3. EUTHYROX [Concomitant]
     Indication: THYROIDECTOMY
     Route: 048
  4. FALITHROM [Concomitant]
     Route: 048
     Dates: end: 20101009

REACTIONS (2)
  - COLITIS [None]
  - DRUG INTERACTION [None]
